FAERS Safety Report 7819042-9 (Version None)
Quarter: 2011Q4

REPORT INFORMATION
  Report Type: 
  Country: None (occurrence: None)
  Receive Date: 20111018
  Receipt Date: 20111007
  Transmission Date: 20120403
  Serious: Yes (Death, Hospitalization)
  Sender: FDA-Public Use
  Company Number: CA-BAXTER-2011BH032024

PATIENT
  Age: 84 Year
  Sex: Male

DRUGS (1)
  1. DIANEAL [Suspect]
     Indication: PERITONEAL DIALYSIS
     Route: 033
     Dates: start: 20090701, end: 20110701

REACTIONS (5)
  - WEIGHT DECREASED [None]
  - SEPSIS [None]
  - ABDOMINAL DISCOMFORT [None]
  - PNEUMONIA [None]
  - DECREASED APPETITE [None]
